FAERS Safety Report 14935780 (Version 4)
Quarter: 2018Q2

REPORT INFORMATION
  Report Type: Report from Study
  Country: US (occurrence: US)
  Receive Date: 20180524
  Receipt Date: 20180625
  Transmission Date: 20180711
  Serious: Yes (Hospitalization)
  Sender: FDA-Public Use
  Company Number: US-ACTELION-A-NJ2017-159363

PATIENT
  Age: 78 Year
  Sex: Female
  Weight: 88.44 kg

DRUGS (15)
  1. UPTRAVI [Suspect]
     Active Substance: SELEXIPAG
     Dosage: UNK
     Route: 048
     Dates: start: 20160608
  2. IMODIUM [Concomitant]
     Active Substance: LOPERAMIDE HYDROCHLORIDE
     Dosage: UNK, QPM
     Dates: start: 2002
  3. UPTRAVI [Suspect]
     Active Substance: SELEXIPAG
     Dosage: 800 MCG, BID
     Route: 048
     Dates: start: 20170818
  4. ELIQUIS [Concomitant]
     Active Substance: APIXABAN
  5. UPTRAVI [Suspect]
     Active Substance: SELEXIPAG
     Indication: PULMONARY ARTERIAL HYPERTENSION
     Dosage: 1600 MCG, BID
     Route: 048
     Dates: start: 20160608
  6. SILDENAFIL. [Concomitant]
     Active Substance: SILDENAFIL
  7. METOPROLOL. [Concomitant]
     Active Substance: METOPROLOL
     Dosage: UNK
     Dates: start: 2014
  8. FLUOXETINE [Concomitant]
     Active Substance: FLUOXETINE HYDROCHLORIDE
  9. UPTRAVI [Suspect]
     Active Substance: SELEXIPAG
     Dosage: 1200 MCG, BID
     Route: 048
  10. SERTRALINE [Concomitant]
     Active Substance: SERTRALINE HYDROCHLORIDE
     Dosage: UNK
     Dates: start: 2002
  11. UPTRAVI [Suspect]
     Active Substance: SELEXIPAG
     Dosage: UNK
     Route: 048
     Dates: start: 20170608
  12. ASPIRIN. [Concomitant]
     Active Substance: ASPIRIN
     Dosage: UNK
     Dates: start: 1997
  13. SIMVASTATIN. [Concomitant]
     Active Substance: SIMVASTATIN
     Dosage: UNK
     Dates: start: 2007
  14. UPTRAVI [Suspect]
     Active Substance: SELEXIPAG
     Dosage: 1400 MCG, BID
     Route: 048
  15. OXYGEN. [Concomitant]
     Active Substance: OXYGEN
     Dosage: UNK, CONT INFUS

REACTIONS (19)
  - Dyspnoea [Unknown]
  - Cough [Unknown]
  - Acute respiratory failure [Recovered/Resolved with Sequelae]
  - Insomnia [Unknown]
  - Productive cough [Not Recovered/Not Resolved]
  - Acute respiratory distress syndrome [Unknown]
  - Respiratory syncytial virus infection [Unknown]
  - Chest pain [Recovered/Resolved]
  - Unevaluable event [Unknown]
  - Pneumonia viral [Unknown]
  - Microcytic anaemia [Unknown]
  - Bronchitis [Unknown]
  - Hypoxia [Recovered/Resolved with Sequelae]
  - Atrial tachycardia [Recovered/Resolved]
  - Upper respiratory tract infection [Unknown]
  - Pneumonia bacterial [Unknown]
  - Atrial fibrillation [Unknown]
  - Metapneumovirus infection [Unknown]
  - Oxygen consumption increased [Recovering/Resolving]

NARRATIVE: CASE EVENT DATE: 20170717
